FAERS Safety Report 11321813 (Version 1)
Quarter: 2015Q3

REPORT INFORMATION
  Report Type: Spontaneous
  Country: CN (occurrence: CN)
  Receive Date: 20150729
  Receipt Date: 20150729
  Transmission Date: 20151125
  Serious: Yes (Other)
  Sender: FDA-Public Use
  Company Number: CN-ELI_LILLY_AND_COMPANY-CN201507009306

PATIENT
  Sex: Male
  Weight: 9 kg

DRUGS (3)
  1. CECLOR [Suspect]
     Active Substance: CEFACLOR
     Indication: BRONCHITIS
     Dosage: 40 MG, TID
     Route: 048
     Dates: start: 20150301, end: 20150302
  2. AMBROXOL [Concomitant]
     Active Substance: AMBROXOL
     Indication: BRONCHITIS
     Dosage: 2 ML, TID
     Route: 048
     Dates: start: 20150301
  3. CLENBUTEROL [Suspect]
     Active Substance: CLENBUTEROL
     Indication: BRONCHITIS
     Dosage: 2.5 ML, TID
     Route: 048
     Dates: start: 20150301, end: 20150302

REACTIONS (1)
  - Hepatic enzyme abnormal [Recovering/Resolving]
